FAERS Safety Report 4928198-7 (Version None)
Quarter: 2006Q1

REPORT INFORMATION
  Report Type: 
  Country: None (occurrence: None)
  Receive Date: 20060223
  Receipt Date: 20060208
  Transmission Date: 20060701
  Serious: Yes (Disabling, Other)
  Sender: FDA-Public Use
  Company Number: 8014927

PATIENT
  Age: 46 Year
  Sex: Female

DRUGS (2)
  1. KEPPRA [Suspect]
     Dosage: 2000 MG/D PO
     Route: 048
     Dates: start: 20011112
  2. CARBAMAZEPINE [Concomitant]

REACTIONS (2)
  - DRUG WITHDRAWAL CONVULSIONS [None]
  - PARKINSONISM [None]
